FAERS Safety Report 9103749 (Version 2)
Quarter: 2013Q1

REPORT INFORMATION
  Report Type: Spontaneous
  Country: JP (occurrence: JP)
  Receive Date: 20130219
  Receipt Date: 20130311
  Transmission Date: 20140127
  Serious: Yes (Other)
  Sender: FDA-Public Use
  Company Number: JP-PFIZER INC-2013058299

PATIENT
  Age: 73 Year
  Sex: Female

DRUGS (2)
  1. DIFLUCAN [Suspect]
     Indication: SKIN EROSION
     Dosage: UNK
     Dates: start: 2012, end: 2012
  2. DIFLUCAN [Suspect]
     Indication: ULCER

REACTIONS (1)
  - Renal impairment [Unknown]
